FAERS Safety Report 12183928 (Version 2)
Quarter: 2017Q1

REPORT INFORMATION
  Report Type: Spontaneous
  Country: AU (occurrence: TH)
  Receive Date: 20160316
  Receipt Date: 20170123
  Transmission Date: 20170428
  Serious: Yes (Hospitalization, Other)
  Sender: FDA-Public Use
  Company Number: AU-PFIZER INC-2016149073

PATIENT
  Age: 49 Year
  Sex: Male

DRUGS (1)
  1. CAVERJECT IMPULSE [Suspect]
     Active Substance: ALPROSTADIL
     Indication: ERECTILE DYSFUNCTION

REACTIONS (14)
  - Fear [Unknown]
  - Social avoidant behaviour [Unknown]
  - Penile operation [Not Recovered/Not Resolved]
  - Penile pain [Not Recovered/Not Resolved]
  - Sexual relationship change [Not Recovered/Not Resolved]
  - Stress [Unknown]
  - Penile burning sensation [Not Recovered/Not Resolved]
  - Partner stress [Unknown]
  - Weight increased [Unknown]
  - Foreign body [Not Recovered/Not Resolved]
  - Dyspareunia [Not Recovered/Not Resolved]
  - Decreased activity [Unknown]
  - Needle issue [Not Recovered/Not Resolved]
  - Loss of libido [Unknown]

NARRATIVE: CASE EVENT DATE: 20141118
